FAERS Safety Report 7290958-8 (Version None)
Quarter: 2011Q1

REPORT INFORMATION
  Report Type: 
  Country: None (occurrence: None)
  Receive Date: 20110201
  Receipt Date: 20110125
  Transmission Date: 20110831
  Serious: Yes (Other)
  Sender: FDA-Public Use
  Company Number: 2011SP003441

PATIENT
  Sex: Female

DRUGS (5)
  1. METHOTREXATE [Concomitant]
  2. MUTAFLOR [Concomitant]
  3. NUVARING [Suspect]
     Indication: CONTRACEPTION
  4. CORTISONE [Concomitant]
  5. SALOFALK /00747601/ [Concomitant]

REACTIONS (1)
  - PANCREATITIS [None]
